FAERS Safety Report 9855215 (Version 1)
Quarter: 2014Q1

REPORT INFORMATION
  Report Type: Spontaneous
  Country: GB (occurrence: None)
  Receive Date: 20140127
  Receipt Date: 20140127
  Transmission Date: 20141002
  Serious: Yes (Other)
  Sender: FDA-Public Use
  Company Number: 2133873

PATIENT
  Sex: Male
  Weight: 70 kg

DRUGS (3)
  1. GENTAMICIN SULFATE [Suspect]
     Indication: ANTIBIOTIC THERAPY
     Route: 033
     Dates: start: 20131202, end: 20131205
  2. ICODEXTRIN [Suspect]
     Indication: CHRONIC OBSTRUCTIVE PULMONARY DISEASE
     Route: 033
     Dates: start: 20131102
  3. CALCIUM CHLORIDE DIHYDRATE W/GLUCOSE MONOHYDRATE [Suspect]
     Indication: PERITONEAL DIALYSIS
     Route: 033

REACTIONS (9)
  - White blood cell count increased [None]
  - Malaise [None]
  - Constipation [None]
  - Rash [None]
  - Rash [None]
  - Rash [None]
  - Device dislocation [None]
  - Discomfort [None]
  - Peritoneal cloudy effluent [None]
